FAERS Safety Report 17248392 (Version 2)
Quarter: 2020Q1

REPORT INFORMATION
  Report Type: Spontaneous
  Country: FR (occurrence: FR)
  Receive Date: 20200108
  Receipt Date: 20200203
  Transmission Date: 20200409
  Serious: Yes (Hospitalization)
  Sender: FDA-Public Use
  Company Number: FR-MYLANLABS-2020M1001900

PATIENT
  Age: 37 Year
  Sex: Female
  Weight: 59 kg

DRUGS (3)
  1. IBUPROFEN. [Suspect]
     Active Substance: IBUPROFEN
     Indication: EAR PAIN
     Dosage: 1 DOSAGE FORM, QD
     Route: 048
     Dates: start: 20190430, end: 20190430
  2. SOLUPRED                           /00016217/ [Suspect]
     Active Substance: PREDNISOLONE SODIUM METAZOATE
     Indication: EAR PAIN
     Dosage: 60 MILLIGRAM, QD
     Route: 048
     Dates: start: 20190430, end: 20190430
  3. OTIPAX                             /01006301/ [Concomitant]
     Indication: EAR PAIN
     Dosage: UNK
     Route: 001
     Dates: start: 20190430

REACTIONS (1)
  - Lung disorder [Recovered/Resolved]

NARRATIVE: CASE EVENT DATE: 20190501
